FAERS Safety Report 7652969-X (Version None)
Quarter: 2011Q3

REPORT INFORMATION
  Report Type: 
  Country: None (occurrence: None)
  Receive Date: 20110802
  Receipt Date: 20110802
  Transmission Date: 20111222
  Serious: Yes (Life-Threatening, Hospitalization)
  Sender: FDA-Public Use
  Company Number: None

PATIENT
  Sex: Female
  Weight: 74.8435 kg

DRUGS (1)
  1. BUSPIRONE HCL [Suspect]
     Dosage: 10 MG 2 X A DAY
     Dates: start: 20100901, end: 20110101

REACTIONS (4)
  - AMNESIA [None]
  - CONVULSION [None]
  - ECONOMIC PROBLEM [None]
  - PAIN [None]
